FAERS Safety Report 8595733-X (Version None)
Quarter: 2012Q3

REPORT INFORMATION
  Report Type: 
  Country: None (occurrence: None)
  Receive Date: 20120815
  Receipt Date: 20120809
  Transmission Date: 20120928
  Serious: Yes (Other)
  Sender: FDA-Public Use
  Company Number: PHHY2012GB065612

PATIENT
  Age: 47 Year
  Sex: Female

DRUGS (12)
  1. OMEPRAZOLE [Concomitant]
  2. NITRAZEPAM [Concomitant]
  3. WARFARIN SODIUM [Interacting]
     Dosage: 10 MG, UNK
  4. FLUOXETINE HCL [Concomitant]
  5. WARFARIN SODIUM [Suspect]
     Indication: PULMONARY EMBOLISM
     Dosage: 17 MG, UNK
  6. WARFARIN SODIUM [Interacting]
     Dosage: 6-7 MG, DAILY
  7. FOLIC ACID [Concomitant]
  8. PENICILLIN V [Concomitant]
  9. VITAMIN B COMPLEX CAP [Concomitant]
  10. FORTISIP [Interacting]
  11. ENOXAPARIN [Concomitant]
     Indication: PULMONARY EMBOLISM
  12. THIAMIN HCL TAB [Concomitant]

REACTIONS (2)
  - DRUG INTERACTION [None]
  - DRUG RESISTANCE [None]
